FAERS Safety Report 4431685-1 (Version None)
Quarter: 2004Q3

REPORT INFORMATION
  Report Type: 
  Country: None (occurrence: None)
  Receive Date: 20040825
  Receipt Date: 20040811
  Transmission Date: 20050211
  Serious: Yes (Hospitalization, Other)
  Sender: FDA-Public Use
  Company Number: HK-JNJFOC-20040803940

PATIENT
  Sex: Female
  Weight: 55.8 kg

DRUGS (3)
  1. REMICADE [Suspect]
     Indication: RHEUMATOID ARTHRITIS
     Route: 042
  2. METHOTREXATE [Concomitant]
     Indication: RHEUMATOID ARTHRITIS
     Route: 049
  3. FOLIC ACID [Concomitant]
     Route: 049

REACTIONS (5)
  - CHEST X-RAY ABNORMAL [None]
  - MYCOBACTERIA SPUTUM TEST POSITIVE [None]
  - PHARMACEUTICAL PRODUCT COMPLAINT [None]
  - PRODUCTIVE COUGH [None]
  - PYREXIA [None]
